FAERS Safety Report 9359713 (Version 2)
Quarter: 2014Q1

REPORT INFORMATION
  Report Type: Report from Study
  Country: CA (occurrence: CA)
  Receive Date: 20130621
  Receipt Date: 20140304
  Transmission Date: 20141002
  Serious: Yes (Other)
  Sender: FDA-Public Use
  Company Number: CA-ROCHE-1239442

PATIENT
  Sex: Female
  Weight: 49.4 kg

DRUGS (9)
  1. RITUXAN [Suspect]
     Indication: RHEUMATOID ARTHRITIS
     Dosage: DAY 1 AND DAY 15
     Route: 042
     Dates: start: 20121121
  2. DIPHENHYDRAMINE HCL [Concomitant]
     Indication: PREMEDICATION
     Route: 048
     Dates: start: 20121121
  3. ACETAMINOPHEN [Concomitant]
     Indication: PREMEDICATION
     Route: 048
     Dates: start: 20121121
  4. METHYLPREDNISOLONE [Concomitant]
     Indication: PREMEDICATION
     Route: 042
     Dates: start: 20121121
  5. ELTROXIN [Concomitant]
  6. VITAMIN B12 [Concomitant]
     Route: 065
  7. PREDNISONE [Concomitant]
  8. TYLENOL [Concomitant]
  9. GABAPENTIN [Concomitant]

REACTIONS (3)
  - Neuropathy peripheral [Not Recovered/Not Resolved]
  - C-reactive protein increased [Not Recovered/Not Resolved]
  - Arthritis [Not Recovered/Not Resolved]
